FAERS Safety Report 19878964 (Version 1)
Quarter: 2021Q3

REPORT INFORMATION
  Report Type: Report from Study
  Country: None (occurrence: CO)
  Receive Date: 20210924
  Receipt Date: 20210924
  Transmission Date: 20211014
  Serious: Yes (Life-Threatening, Hospitalization, Other)
  Sender: FDA-Public Use
  Company Number: CO-ABBVIE-21K-036-3865866-00

PATIENT
  Age: 68 Year
  Sex: Male
  Weight: 82 kg

DRUGS (6)
  1. ROSUVASTATIN. [Concomitant]
     Active Substance: ROSUVASTATIN
     Indication: PRODUCT USED FOR UNKNOWN INDICATION
  2. HUMIRA [Suspect]
     Active Substance: ADALIMUMAB
     Route: 058
     Dates: start: 20190619
  3. IVABRADINE [Concomitant]
     Active Substance: IVABRADINE
     Indication: PRODUCT USED FOR UNKNOWN INDICATION
  4. HUMIRA [Suspect]
     Active Substance: ADALIMUMAB
     Indication: PSORIASIS
     Route: 058
     Dates: start: 20190619, end: 20210320
  5. NEBIVOLOL. [Concomitant]
     Active Substance: NEBIVOLOL
     Indication: PRODUCT USED FOR UNKNOWN INDICATION
     Dosage: 1 AT NIGHT
  6. SACUBITRIL [Concomitant]
     Active Substance: SACUBITRIL
     Indication: PRODUCT USED FOR UNKNOWN INDICATION

REACTIONS (9)
  - Asthenia [Recovered/Resolved]
  - Oxygen saturation abnormal [Recovered/Resolved]
  - Thrombosis [Recovering/Resolving]
  - Back pain [Recovered/Resolved]
  - COVID-19 [Recovered/Resolved]
  - Cerebral infarction [Recovering/Resolving]
  - Reading disorder [Recovering/Resolving]
  - Amnesia [Recovering/Resolving]
  - Dysgraphia [Recovering/Resolving]

NARRATIVE: CASE EVENT DATE: 2021
